FAERS Safety Report 11878649 (Version 1)
Quarter: 2015Q4

REPORT INFORMATION
  Report Type: Spontaneous
  Country: GB (occurrence: GB)
  Receive Date: 20151230
  Receipt Date: 20151230
  Transmission Date: 20160305
  Serious: Yes (Death)
  Sender: FDA-Public Use
  Company Number: GB-TEVA-621466ISR

PATIENT
  Age: 42 Year
  Sex: Male
  Weight: 73 kg

DRUGS (4)
  1. MORPHINE [Suspect]
     Active Substance: MORPHINE
     Route: 065
  2. MIRTAZAPINE. [Suspect]
     Active Substance: MIRTAZAPINE
     Route: 065
  3. CODEINE [Suspect]
     Active Substance: CODEINE
     Route: 065
  4. DIAZEPAM. [Suspect]
     Active Substance: DIAZEPAM
     Route: 065

REACTIONS (1)
  - Toxicity to various agents [Fatal]
